FAERS Safety Report 9171640 (Version 1)
Quarter: 2013Q1

REPORT INFORMATION
  Report Type: Spontaneous
  Country: US (occurrence: None)
  Receive Date: 20130129
  Receipt Date: 20130129
  Transmission Date: 20140127
  Serious: Yes (Life-Threatening)
  Sender: FDA-Public Use
  Company Number: 2013AA000082

PATIENT
  Age: 48 Year
  Sex: Female
  Weight: 49.5 kg

DRUGS (3)
  1. ALLERGENIC EXTRACT [Suspect]
     Route: 058
     Dates: start: 20121217, end: 20121217
  2. TRILEPTAL [Concomitant]
  3. METAMUCIL/00029101 [Concomitant]

REACTIONS (1)
  - Anaphylactic reaction [None]
